FAERS Safety Report 7350565-5 (Version None)
Quarter: 2011Q1

REPORT INFORMATION
  Report Type: 
  Country: None (occurrence: None)
  Receive Date: 20110303
  Receipt Date: 20110223
  Transmission Date: 20110831
  Serious: Yes (Other)
  Sender: FDA-Public Use
  Company Number: 2011MA001710

PATIENT
  Age: 18 Month
  Sex: Female
  Weight: 11 kg

DRUGS (2)
  1. FLECAINIDE [Concomitant]
  2. PROPRANOLOL HCL [Suspect]
     Indication: VENTRICULAR TACHYCARDIA
     Dosage: 25 MG;TID

REACTIONS (5)
  - HYPOPHAGIA [None]
  - VIRAL INFECTION [None]
  - SYNCOPE [None]
  - DEPRESSED LEVEL OF CONSCIOUSNESS [None]
  - HYPOGLYCAEMIA [None]
